FAERS Safety Report 16029674 (Version 1)
Quarter: 2019Q1

REPORT INFORMATION
  Report Type: Report from Study
  Country: US (occurrence: US)
  Receive Date: 20190304
  Receipt Date: 20190304
  Transmission Date: 20190418
  Serious: No
  Sender: FDA-Public Use
  Company Number: US-ROCHE-2273438

PATIENT
  Sex: Female
  Weight: 103.97 kg

DRUGS (1)
  1. OCREVUS [Suspect]
     Active Substance: OCRELIZUMAB
     Indication: SECONDARY PROGRESSIVE MULTIPLE SCLEROSIS
     Route: 065
     Dates: start: 201709

REACTIONS (3)
  - Infection [Recovered/Resolved]
  - Intentional product use issue [Unknown]
  - Off label use [Unknown]
